FAERS Safety Report 5762202-1 (Version None)
Quarter: 2008Q2

REPORT INFORMATION
  Report Type: 
  Country: None (occurrence: None)
  Receive Date: 20080609
  Receipt Date: 20080529
  Transmission Date: 20081010
  Serious: Yes (Other)
  Sender: FDA-Public Use
  Company Number: GB-BAYER-200811387BNE

PATIENT
  Age: 20 Year
  Sex: Female

DRUGS (1)
  1. YASMIN [Suspect]
     Indication: AMENORRHOEA
     Route: 048
     Dates: start: 20070905, end: 20080204

REACTIONS (3)
  - PALPITATIONS [None]
  - PRESYNCOPE [None]
  - VENTRICULAR TACHYCARDIA [None]
